FAERS Safety Report 8479705-1 (Version None)
Quarter: 2012Q2

REPORT INFORMATION
  Report Type: 
  Country: None (occurrence: None)
  Receive Date: 20120629
  Receipt Date: 20120618
  Transmission Date: 20120825
  Serious: Yes (Other)
  Sender: FDA-Public Use
  Company Number: JP-VERTEX PHARMACEUTICALS INC.-AE-2012-009264

PATIENT
  Age: 63 Year
  Sex: Female

DRUGS (8)
  1. TELAVIC (TELAPREVIR) [Suspect]
     Indication: HEPATITIS C
     Route: 048
     Dates: start: 20120418, end: 20120508
  2. PEGINTERFERON ALFA-2B [Concomitant]
     Route: 058
     Dates: start: 20120509, end: 20120515
  3. REBETOL [Concomitant]
     Indication: HEPATITIS C
     Route: 048
     Dates: start: 20120418, end: 20120515
  4. PEGINTERFERON ALFA-2B [Concomitant]
     Indication: HEPATITIS C
     Route: 058
     Dates: start: 20120418, end: 20120508
  5. DEMUNATTO [Concomitant]
     Route: 048
  6. REBETOL [Concomitant]
     Route: 048
     Dates: start: 20120516, end: 20120529
  7. PEGINTERFERON ALFA-2B [Concomitant]
     Route: 058
     Dates: start: 20120516
  8. TELAVIC (TELAPREVIR) [Suspect]
     Route: 048
     Dates: start: 20120509

REACTIONS (1)
  - WHITE BLOOD CELL COUNT DECREASED [None]
